FAERS Safety Report 14871680 (Version 3)
Quarter: 2018Q2

REPORT INFORMATION
  Report Type: Report from Study
  Country: AU (occurrence: AU)
  Receive Date: 20180509
  Receipt Date: 20180525
  Transmission Date: 20180711
  Serious: Yes (Other)
  Sender: FDA-Public Use
  Company Number: AU-MYLANLABS-2018M1030840

PATIENT
  Age: 34 Year
  Sex: Female
  Weight: 68 kg

DRUGS (5)
  1. CLOZARIL [Suspect]
     Active Substance: CLOZAPINE
     Indication: SCHIZOPHRENIA
     Dosage: 400 MG, UNK
     Route: 048
     Dates: start: 20071218
  2. CITALOPRAM [Concomitant]
     Active Substance: CITALOPRAM HYDROBROMIDE
     Indication: PRODUCT USED FOR UNKNOWN INDICATION
     Dosage: 40 MG, HS
  3. BETMIGA [Concomitant]
     Active Substance: MIRABEGRON
     Indication: PRODUCT USED FOR UNKNOWN INDICATION
     Dosage: 50 MG, HS
  4. CLOZARIL [Suspect]
     Active Substance: CLOZAPINE
     Dosage: 400 MG, HS
     Route: 048
  5. BETMIGA [Concomitant]
     Active Substance: MIRABEGRON
     Dosage: UNK

REACTIONS (6)
  - Blood glucose increased [Recovered/Resolved]
  - Mitral valve incompetence [Unknown]
  - Low density lipoprotein increased [Recovered/Resolved]
  - Pulmonary valve incompetence [Unknown]
  - Blood triglycerides increased [Recovered/Resolved]
  - Tricuspid valve incompetence [Unknown]

NARRATIVE: CASE EVENT DATE: 20150525
